FAERS Safety Report 10341258 (Version 2)
Quarter: 2014Q3

REPORT INFORMATION
  Report Type: Spontaneous
  Country: CA (occurrence: CA)
  Receive Date: 20140725
  Receipt Date: 20140725
  Transmission Date: 20150326
  Serious: Yes (Other)
  Sender: FDA-Public Use
  Company Number: CA-AMGEN-CANSP2011061533

PATIENT
  Age: 47 Year
  Sex: Female

DRUGS (6)
  1. METHOTREXATE [Suspect]
     Active Substance: METHOTREXATE
     Indication: PRODUCT USED FOR UNKNOWN INDICATION
     Dosage: UNK
     Route: 065
  2. PROTANDIM [Suspect]
     Active Substance: DIETARY SUPPLEMENT
     Indication: CYSTITIS INTERSTITIAL
     Dosage: UNK
     Route: 065
  3. TETRACYCLINE [Concomitant]
     Active Substance: TETRACYCLINE
     Dosage: UNK
  4. GOLD [Concomitant]
     Active Substance: GOLD
     Dosage: 2.5/25MCG
  5. ENBREL [Suspect]
     Active Substance: ETANERCEPT
     Indication: PSORIATIC ARTHROPATHY
     Dosage: 50 MG, QWK
     Route: 058
     Dates: start: 201107
  6. SULFASALAZINE. [Suspect]
     Active Substance: SULFASALAZINE
     Indication: PRODUCT USED FOR UNKNOWN INDICATION
     Dosage: 500 MG, BID
     Route: 048

REACTIONS (14)
  - Eyelid exfoliation [Recovered/Resolved]
  - Psoriasis [Recovered/Resolved]
  - Incorrect dose administered [Unknown]
  - Joint swelling [Unknown]
  - Pruritus [Unknown]
  - Arthralgia [Not Recovered/Not Resolved]
  - Tuberculin test positive [Recovered/Resolved]
  - Pain in extremity [Not Recovered/Not Resolved]
  - Psoriatic arthropathy [Not Recovered/Not Resolved]
  - Drug effect decreased [Not Recovered/Not Resolved]
  - Muscle spasms [Unknown]
  - Cystitis interstitial [Unknown]
  - Tenderness [Unknown]
  - Injection site reaction [Recovering/Resolving]
